FAERS Safety Report 10383990 (Version 1)
Quarter: 2014Q1

REPORT INFORMATION
  Report Type: Spontaneous
  Country: US (occurrence: None)
  Receive Date: 20140306
  Receipt Date: 20140306
  Transmission Date: 20141002
  Serious: Yes (Other)
  Sender: FDA-Public Use
  Company Number: 163-21880-13110066

PATIENT
  Age: 85 Year
  Sex: Male

DRUGS (21)
  1. REVLIMID (LENALIDOMIDE) (5 MILLIGRAM, CAPSULES) [Suspect]
     Indication: MYELODYSPLASTIC SYNDROME
     Dosage: 15 MG, FOR 20 DAYS FOLLOWED BY 7 DAYS OFF, PO
     Route: 048
     Dates: start: 20131009, end: 20131015
  2. FUROSEMIDE [Concomitant]
  3. LOVASTATIN [Concomitant]
  4. FINASTERIDE [Concomitant]
  5. DOXAZOSIN [Concomitant]
  6. ALLOPURINOL [Concomitant]
  7. LEVOTHYROXINE [Concomitant]
  8. POTASSIUM CHLORIDE [Concomitant]
  9. VITAMIN D3 (COLECALCIFEROL) [Concomitant]
  10. COLCHICINE [Concomitant]
  11. ONDANSETRON [Concomitant]
  12. VITAMIN C (ASCORBIC ACID) [Concomitant]
  13. ASPIRIN (ACETYLSALICYLIC ACID) [Concomitant]
  14. VITAMIN B12 (CYANOCOBALAMIN) [Concomitant]
  15. COENZYME Q10 (UBIDECARENONE) [Concomitant]
  16. POLYSORBATE 20 [Concomitant]
  17. CALCITRIOL [Concomitant]
  18. CARVEDILOL [Concomitant]
  19. IPRATOPRIUM [Concomitant]
  20. ENALAPRIL [Concomitant]
  21. FOLIC ACID [Concomitant]

REACTIONS (1)
  - Pancytopenia [None]
